FAERS Safety Report 8228954-6 (Version None)
Quarter: 2012Q1

REPORT INFORMATION
  Report Type: 
  Country: None (occurrence: None)
  Receive Date: 20120322
  Receipt Date: 20120312
  Transmission Date: 20120608
  Serious: Yes (Hospitalization, Other)
  Sender: FDA-Public Use
  Company Number: MX-SANOFI-AVENTIS-2012SA011213

PATIENT
  Age: 76 Year
  Sex: Male

DRUGS (2)
  1. LANTUS [Suspect]
     Indication: TYPE 2 DIABETES MELLITUS
     Dosage: DOSE: 26 IU IN THE MORNING AND 20 IU AT NIGHT
     Route: 058
     Dates: start: 20020101
  2. SEROQUEL [Concomitant]
     Indication: DEPRESSION
     Dosage: 3/4 TABLET
     Route: 048
     Dates: start: 20111201

REACTIONS (5)
  - ABDOMINAL PAIN UPPER [None]
  - HYPOTHYROIDISM [None]
  - COLITIS [None]
  - PANCREATITIS [None]
  - DRUG ADMINISTRATION ERROR [None]
